FAERS Safety Report 12730932 (Version 1)
Quarter: 2016Q3

REPORT INFORMATION
  Report Type: Spontaneous
  Country: US (occurrence: US)
  Receive Date: 20160908
  Receipt Date: 20160908
  Transmission Date: 20161109
  Serious: Yes (Death, Life-Threatening, Hospitalization)
  Sender: FDA-Public Use
  Company Number: None

PATIENT
  Age: 69 Year
  Sex: Male
  Weight: 98.88 kg

DRUGS (25)
  1. BENEFIBER [Concomitant]
     Active Substance: STARCH, WHEAT
  2. IMODIUM [Concomitant]
     Active Substance: LOPERAMIDE HYDROCHLORIDE
  3. CIPRO [Concomitant]
     Active Substance: CIPROFLOXACIN HYDROCHLORIDE
  4. LIPITOR [Concomitant]
     Active Substance: ATORVASTATIN CALCIUM
  5. LORAZEPAM. [Concomitant]
     Active Substance: LORAZEPAM
  6. YERVOY [Suspect]
     Active Substance: IPILIMUMAB
     Indication: METASTATIC MALIGNANT MELANOMA
     Route: 042
     Dates: start: 20160218, end: 20160311
  7. ACTOS [Concomitant]
     Active Substance: PIOGLITAZONE HYDROCHLORIDE
  8. AMARYL [Concomitant]
     Active Substance: GLIMEPIRIDE
  9. BAYER CONTOUR NEXT TEST IN VITRO STRIP [Concomitant]
  10. LASIX (FOROSEMIDE) [Concomitant]
  11. METFORMIN HCL [Concomitant]
     Active Substance: METFORMIN HYDROCHLORIDE
  12. SPIRIVA RESPIMAT [Concomitant]
     Active Substance: TIOTROPIUM BROMIDE
  13. CENTRUM SILVER [Concomitant]
     Active Substance: MINERALS\VITAMINS
  14. PREDNISONE. [Concomitant]
     Active Substance: PREDNISONE
  15. AMBIEN [Concomitant]
     Active Substance: ZOLPIDEM TARTRATE
  16. LIDOCAINE 5% [Concomitant]
     Active Substance: LIDOCAINE
  17. PRILOSEC CPDR (OMEPRAZOLE) [Concomitant]
  18. DULERA [Concomitant]
     Active Substance: FORMOTEROL FUMARATE DIHYDRATE\MOMETASONE FUROATE
  19. LEVEMIR [Concomitant]
     Active Substance: INSULIN DETEMIR
  20. VITAMIN C [Concomitant]
     Active Substance: ASCORBIC ACID
  21. BAYER ASPIRIN EC LOW DOSE 81 [Concomitant]
  22. FLAGYL [Concomitant]
     Active Substance: METRONIDAZOLE\METRONIDAZOLE HYDROCHLORIDE
  23. PRESERVISION AREDS [Concomitant]
     Active Substance: MINERALS\VITAMINS
  24. ACETAMINOPHEN-CODEINE [Concomitant]
     Active Substance: ACETAMINOPHEN\CODEINE PHOSPHATE
  25. POTASSIUM [Concomitant]
     Active Substance: POTASSIUM

REACTIONS (18)
  - Colitis [None]
  - Haemorrhoids thrombosed [None]
  - Pneumonia [None]
  - Diarrhoea [None]
  - Anal abscess [None]
  - Heart rate increased [None]
  - Acute respiratory distress syndrome [None]
  - Anal ulcer [None]
  - Oedema peripheral [None]
  - Asthenia [None]
  - Haematochezia [None]
  - Blood alkaline phosphatase increased [None]
  - Traumatic lung injury [None]
  - Diverticulitis [None]
  - Interstitial lung disease [None]
  - Hepatic failure [None]
  - Decreased appetite [None]
  - Hypotension [None]

NARRATIVE: CASE EVENT DATE: 20160522
